FAERS Safety Report 10850135 (Version 1)
Quarter: 2015Q1

REPORT INFORMATION
  Report Type: Spontaneous
  Country: IT (occurrence: IT)
  Receive Date: 20150221
  Receipt Date: 20150221
  Transmission Date: 20150721
  Serious: Yes (Hospitalization)
  Sender: FDA-Public Use
  Company Number: IT-TEVA-541380ACC

PATIENT
  Age: 35 Year
  Sex: Female

DRUGS (5)
  1. VALIUM [Concomitant]
     Active Substance: DIAZEPAM
     Indication: PRODUCT USED FOR UNKNOWN INDICATION
     Dosage: ORAL DROPS, SOLUTION
     Route: 048
  2. CITALOPRAM [Suspect]
     Active Substance: CITALOPRAM HYDROBROMIDE
     Indication: SUICIDE ATTEMPT
     Dosage: 15 ML TOTAL, ORAL DROPS, SOLUTION
     Route: 048
     Dates: start: 20141105, end: 20141105
  3. PROZIN - 25 MG COMPRESSE RIVESTITE [Suspect]
     Active Substance: CHLORPROMAZINE HYDROCHLORIDE
     Indication: SUICIDE ATTEMPT
     Dosage: 6 DF TOTAL
     Route: 048
     Dates: start: 20141105, end: 20141105
  4. MAVERAL - 100 MG COMPRESSE RIVESTITE CON FILM [Concomitant]
     Active Substance: FLUVOXAMINE MALEATE
     Indication: PRODUCT USED FOR UNKNOWN INDICATION
     Route: 048
  5. OLANZAPINE. [Concomitant]
     Active Substance: OLANZAPINE
     Indication: PRODUCT USED FOR UNKNOWN INDICATION
     Route: 048

REACTIONS (3)
  - Drug abuse [Unknown]
  - Poisoning [Unknown]
  - Agitation [Unknown]

NARRATIVE: CASE EVENT DATE: 20141105
